FAERS Safety Report 9419037 (Version 1)
Quarter: 2013Q3

REPORT INFORMATION
  Report Type: Report from Study
  Country: US (occurrence: US)
  Receive Date: 20130725
  Receipt Date: 20130725
  Transmission Date: 20140515
  Serious: Yes (Hospitalization)
  Sender: FDA-Public Use
  Company Number: US-NAPPMUNDI-USA-2013-0104681

PATIENT
  Age: 61 Year
  Sex: Male

DRUGS (1)
  1. OXYCONTIN (NDA 22-272) [Suspect]
     Indication: NEUROPATHY PERIPHERAL
     Dosage: 40 MG, Q12H
     Dates: start: 2010

REACTIONS (2)
  - Fall [Unknown]
  - Hip fracture [Unknown]
